FAERS Safety Report 17341620 (Version 1)
Quarter: 2020Q1

REPORT INFORMATION
  Report Type: Spontaneous
  Country: US (occurrence: US)
  Receive Date: 20200129
  Receipt Date: 20200129
  Transmission Date: 20200409
  Serious: Yes (Hospitalization)
  Sender: FDA-Public Use
  Company Number: US-EPIC PHARMA LLC-2019EPC00349

PATIENT
  Sex: Female
  Weight: 69.16 kg

DRUGS (4)
  1. ALUMINUM SULFATE/CALCIUM ACETATE ASTRINGENT SOLUTION [Suspect]
     Active Substance: ALUMINUM SULFATE\CALCIUM ACETATE
     Dosage: PRESCRIBED TO BE APPLIED FOR 10 MINUTES A DAY
     Route: 061
  2. TYLENOL [Concomitant]
     Active Substance: ACETAMINOPHEN
  3. ALUMINUM SULFATE/CALCIUM ACETATE ASTRINGENT SOLUTION [Suspect]
     Active Substance: ALUMINUM SULFATE\CALCIUM ACETATE
     Indication: SKIN DISORDER
     Dosage: UNK, INTERMITTENTLY
     Route: 048
     Dates: start: 2019, end: 2019
  4. OXYCODONE [Concomitant]
     Active Substance: OXYCODONE

REACTIONS (5)
  - Thyroid function test abnormal [Recovered/Resolved]
  - Delirium [Recovering/Resolving]
  - Confusional state [Recovering/Resolving]
  - Incorrect route of product administration [Recovered/Resolved]
  - Blood sodium decreased [Recovered/Resolved]

NARRATIVE: CASE EVENT DATE: 2019
